FAERS Safety Report 10180473 (Version 1)
Quarter: 2014Q2

REPORT INFORMATION
  Report Type: Spontaneous
  Country: US (occurrence: US)
  Receive Date: 20140519
  Receipt Date: 20140519
  Transmission Date: 20141212
  Serious: No
  Sender: FDA-Public Use
  Company Number: US-AMGEN INC.-USASP2014001116

PATIENT
  Age: 61 Year
  Sex: Female

DRUGS (4)
  1. PROLIA [Suspect]
     Indication: OSTEOPOROSIS POSTMENOPAUSAL
     Dosage: UNK
     Route: 065
  2. ZOLPIDEM [Concomitant]
     Dosage: UNK UNK, AS NECESSARY
     Route: 065
  3. VITAMIN D                          /00107901/ [Concomitant]
     Dosage: UNK
     Route: 065
  4. CALCIUM [Concomitant]
     Dosage: UNK
     Route: 065

REACTIONS (5)
  - Tooth disorder [Unknown]
  - Feeling abnormal [Unknown]
  - Pain [Unknown]
  - Musculoskeletal stiffness [Unknown]
  - Arthralgia [Unknown]
